FAERS Safety Report 5397680-3 (Version None)
Quarter: 2007Q3

REPORT INFORMATION
  Report Type: 
  Country: None (occurrence: None)
  Receive Date: 20070726
  Receipt Date: 20070718
  Transmission Date: 20080115
  Serious: Yes (Other)
  Sender: FDA-Public Use
  Company Number: BE-JNJFOC-20070305082

PATIENT
  Age: 27 Year
  Sex: Male

DRUGS (3)
  1. RISPERDAL [Suspect]
     Indication: DRUG USE FOR UNKNOWN INDICATION
     Route: 048
  2. DEPAKENE [Interacting]
     Indication: DRUG USE FOR UNKNOWN INDICATION
     Route: 065
  3. AMISULPRIDE [Concomitant]
     Route: 065

REACTIONS (1)
  - DRUG INTERACTION [None]
